FAERS Safety Report 21376947 (Version 1)
Quarter: 2022Q3

REPORT INFORMATION
  Report Type: Spontaneous
  Country: DE (occurrence: DE)
  Receive Date: 20220926
  Receipt Date: 20220926
  Transmission Date: 20221026
  Serious: Yes (Hospitalization)
  Sender: FDA-Public Use
  Company Number: None

PATIENT
  Age: 68 Year
  Sex: Male
  Weight: 68.1 kg

DRUGS (2)
  1. METHOTREXATE SODIUM [Suspect]
     Active Substance: METHOTREXATE SODIUM
     Dosage: 15 MG, ACCORDING TO SCHEMA
     Route: 048
  2. TOFACITINIB [Suspect]
     Active Substance: TOFACITINIB
     Dosage: 5 MG, 1-0-1-0
     Route: 048

REACTIONS (8)
  - Hepatic mass [Unknown]
  - Dyspnoea [Unknown]
  - Pyrexia [Unknown]
  - Decreased appetite [Unknown]
  - Night sweats [Unknown]
  - Non-Hodgkin^s lymphoma [Unknown]
  - Weight decreased [Unknown]
  - Hepatic enzyme increased [Unknown]
